FAERS Safety Report 8137726-2 (Version None)
Quarter: 2012Q1

REPORT INFORMATION
  Report Type: 
  Country: None (occurrence: None)
  Receive Date: 20120215
  Receipt Date: 20120213
  Transmission Date: 20120608
  Serious: No
  Sender: FDA-Public Use
  Company Number: US-PFIZER INC-2012002588

PATIENT
  Age: 82 Year
  Sex: Male
  Weight: 104 kg

DRUGS (2)
  1. NADOLOL [Suspect]
     Indication: HYPERTENSION
     Dosage: 80 MG, 1X/DAY
     Route: 048
     Dates: start: 20111101
  2. CORGARD [Suspect]
     Indication: HYPERTENSION
     Dosage: 80 MG, 1X/DAY
     Route: 048
     Dates: end: 20111101

REACTIONS (2)
  - PRODUCT SUBSTITUTION ISSUE [None]
  - DIZZINESS [None]
